FAERS Safety Report 5083865-2 (Version None)
Quarter: 2006Q3

REPORT INFORMATION
  Report Type: 
  Country: None (occurrence: None)
  Receive Date: 20060727
  Receipt Date: 20060417
  Transmission Date: 20061208
  Serious: Yes (Other)
  Sender: FDA-Public Use
  Company Number: 2006052533

PATIENT
  Sex: Female
  Weight: 101.6057 kg

DRUGS (9)
  1. LYRICA [Suspect]
     Indication: ILL-DEFINED DISORDER
     Dosage: 30 MG (15 MG, 2 IN 1 D)
     Dates: start: 20051215
  2. IMITREX [Concomitant]
  3. PIROXICAM [Concomitant]
  4. FLEXERIL [Concomitant]
  5. LEXAPRO [Concomitant]
  6. METOPROLOL (METOPROLOL) [Concomitant]
  7. METHADONE HCL [Concomitant]
  8. XANAX [Concomitant]
  9. AMBIEN [Concomitant]

REACTIONS (1)
  - DRUG SCREEN FALSE POSITIVE [None]
